FAERS Safety Report 10379618 (Version 1)
Quarter: 2014Q3

REPORT INFORMATION
  Report Type: Spontaneous
  Country: CN (occurrence: None)
  Receive Date: 20140808
  Receipt Date: 20140808
  Transmission Date: 20150326
  Serious: Yes (Hospitalization, Disabling, Other)
  Sender: FDA-Public Use
  Company Number: CN-016637

PATIENT
  Sex: Female

DRUGS (1)
  1. PROPESS (PROPESS) 10 MG (NOT SPECIFIED) [Suspect]
     Active Substance: DINOPROSTONE
     Indication: INDUCTION OF CERVIX RIPENING
     Route: 067
     Dates: start: 20140727, end: 20140727

REACTIONS (3)
  - Postpartum haemorrhage [None]
  - Hysterectomy [None]
  - Maternal exposure during delivery [None]

NARRATIVE: CASE EVENT DATE: 20140727
